FAERS Safety Report 12586628 (Version 8)
Quarter: 2019Q1

REPORT INFORMATION
  Report Type: Spontaneous
  Country: US (occurrence: US)
  Receive Date: 20160725
  Receipt Date: 20190318
  Transmission Date: 20190417
  Serious: No
  Sender: FDA-Public Use
  Company Number: US-PFIZER INC-2016326522

PATIENT
  Age: 71 Year
  Sex: Female

DRUGS (10)
  1. TETRACYCLINE HCL [Suspect]
     Active Substance: TETRACYCLINE HYDROCHLORIDE
     Dosage: UNK
  2. AMOXICILLIN. [Suspect]
     Active Substance: AMOXICILLIN
     Dosage: UNK
  3. PHENYLBUTAZONE [Suspect]
     Active Substance: PHENYLBUTAZONE
     Dosage: UNK
  4. DALALONE [Suspect]
     Active Substance: DEXAMETHASONE SODIUM PHOSPHATE
     Dosage: UNK
  5. FLUTICASONE. [Suspect]
     Active Substance: FLUTICASONE
     Dosage: UNK
  6. TRILISATE [Suspect]
     Active Substance: CHOLINE SALICYLATE\MAGNESIUM SALICYLATE
     Dosage: UNK
  7. VANCOMYCIN HCL [Suspect]
     Active Substance: VANCOMYCIN HYDROCHLORIDE
     Dosage: UNK
  8. CATAPRES [Suspect]
     Active Substance: CLONIDINE HYDROCHLORIDE
     Dosage: UNK
  9. FELDENE [Suspect]
     Active Substance: PIROXICAM
     Dosage: UNK
  10. METOPROLOL TARTRATE. [Suspect]
     Active Substance: METOPROLOL TARTRATE
     Dosage: UNK

REACTIONS (1)
  - Drug hypersensitivity [Unknown]
